FAERS Safety Report 19893001 (Version 1)
Quarter: 2021Q3

REPORT INFORMATION
  Report Type: Spontaneous
  Country: FR (occurrence: FR)
  Receive Date: 20210928
  Receipt Date: 20210928
  Transmission Date: 20211014
  Serious: Yes (Other)
  Sender: FDA-Public Use
  Company Number: FR-ORGANON-O2109FRA001917

PATIENT
  Age: 3 Year
  Sex: Female
  Weight: 14 kg

DRUGS (5)
  1. TRIDESONIT [Suspect]
     Active Substance: DESONIDE
     Indication: ECZEMA
     Dosage: 1 TUBE PER WEEK
     Route: 003
     Dates: start: 20180301, end: 20180831
  2. BETAMETHASONE. [Suspect]
     Active Substance: BETAMETHASONE
     Indication: BRONCHITIS
     Dosage: DOSAGE NOT SPECIFIED
     Route: 048
     Dates: start: 20191001
  3. STERDEX [Suspect]
     Active Substance: DEXAMETHASONE\OXYTETRACYCLINE
     Indication: EYE INFECTION BACTERIAL
     Dosage: DOSAGE NOT SPECIFIED
     Route: 047
     Dates: start: 20180701, end: 20180801
  4. BETNEVAL [Suspect]
     Active Substance: BETAMETHASONE VALERATE
     Indication: ECZEMA
     Dosage: 2 TUBES PER WEEK
     Route: 003
     Dates: start: 20190901, end: 20210201
  5. PROTOPIC [Suspect]
     Active Substance: TACROLIMUS
     Indication: ECZEMA
     Dosage: 1 PER WEEK
     Route: 003
     Dates: start: 20190901, end: 20210201

REACTIONS (1)
  - Withdrawal syndrome [Not Recovered/Not Resolved]

NARRATIVE: CASE EVENT DATE: 20210201
